FAERS Safety Report 17355169 (Version 4)
Quarter: 2023Q2

REPORT INFORMATION
  Report Type: Spontaneous
  Country: US (occurrence: US)
  Receive Date: 20200131
  Receipt Date: 20230413
  Transmission Date: 20230721
  Serious: Yes (Hospitalization, Other)
  Sender: FDA-Public Use
  Company Number: US-GILEAD-2020-0448815

PATIENT
  Sex: Female
  Weight: 68.027 kg

DRUGS (9)
  1. ATRIPLA [Suspect]
     Active Substance: EFAVIRENZ\EMTRICITABINE\TENOFOVIR DISOPROXIL FUMARATE
     Indication: HIV infection
     Dosage: UNK
     Route: 048
     Dates: start: 2008, end: 2018
  2. ATRIPLA [Suspect]
     Active Substance: EFAVIRENZ\EMTRICITABINE\TENOFOVIR DISOPROXIL FUMARATE
     Dosage: UNK
     Route: 048
     Dates: start: 2008, end: 201706
  3. TRIUMEQ [Concomitant]
     Active Substance: ABACAVIR SULFATE\DOLUTEGRAVIR SODIUM\LAMIVUDINE
  4. PROZAC [Concomitant]
     Active Substance: FLUOXETINE HYDROCHLORIDE
  5. ABILIFY [Concomitant]
     Active Substance: ARIPIPRAZOLE
  6. DIOVAN [Concomitant]
     Active Substance: VALSARTAN
  7. METFORMIN [Concomitant]
     Active Substance: METFORMIN HYDROCHLORIDE
  8. ACETAMINOPHEN\HYDROCODONE\PROMETHAZINE [Concomitant]
     Active Substance: ACETAMINOPHEN\HYDROCODONE\PROMETHAZINE
  9. QUETIAPINE [Concomitant]
     Active Substance: QUETIAPINE

REACTIONS (10)
  - Kidney infection [Unknown]
  - Acute kidney injury [Not Recovered/Not Resolved]
  - Renal failure [Unknown]
  - Chronic kidney disease [Not Recovered/Not Resolved]
  - Emotional distress [Not Recovered/Not Resolved]
  - Anxiety [Not Recovered/Not Resolved]
  - Anhedonia [Not Recovered/Not Resolved]
  - Pain [Not Recovered/Not Resolved]
  - Blood creatinine increased [Not Recovered/Not Resolved]
  - Depression [Unknown]

NARRATIVE: CASE EVENT DATE: 20110101
